FAERS Safety Report 4980225-7 (Version None)
Quarter: 2006Q2

REPORT INFORMATION
  Report Type: 
  Country: None (occurrence: None)
  Receive Date: 20060424
  Receipt Date: 20060328
  Transmission Date: 20061013
  Serious: Yes (Other)
  Sender: FDA-Public Use
  Company Number: PHEH2006US04150

PATIENT
  Age: 50 Year
  Sex: Male
  Weight: 263 kg

DRUGS (5)
  1. GLEEVEC [Suspect]
     Indication: CHRONIC MYELOID LEUKAEMIA
     Dosage: 400 MG, QD
     Route: 048
     Dates: start: 20040501, end: 20060101
  2. GLEEVEC [Suspect]
     Dosage: 400 MG, QD
     Route: 048
     Dates: start: 20060201, end: 20060301
  3. ASPIRIN [Concomitant]
     Indication: PROPHYLAXIS
     Dosage: 325 MG, QD
     Route: 048
     Dates: start: 20051201
  4. PROCHLORPERAZINE MALEATE [Concomitant]
  5. TYLENOL (CAPLET) [Concomitant]

REACTIONS (10)
  - ANOREXIA [None]
  - APHTHOUS STOMATITIS [None]
  - ASTHENIA [None]
  - CONFUSIONAL STATE [None]
  - ENCEPHALOPATHY [None]
  - FATIGUE [None]
  - MUSCLE SPASMS [None]
  - NAUSEA [None]
  - SPEECH DISORDER [None]
  - VERTIGO [None]
